FAERS Safety Report 18577370 (Version 1)
Quarter: 2020Q4

REPORT INFORMATION
  Report Type: Spontaneous
  Country: US (occurrence: US)
  Receive Date: 20201204
  Receipt Date: 20201204
  Transmission Date: 20210114
  Serious: Yes (Other)
  Sender: FDA-Public Use
  Company Number: US-UCBSA-2020048343

PATIENT
  Age: 68 Year
  Sex: Male
  Weight: 79.3 kg

DRUGS (2)
  1. SOTALOL. [Concomitant]
     Active Substance: SOTALOL
     Indication: PRODUCT USED FOR UNKNOWN INDICATION
  2. VIMPAT [Suspect]
     Active Substance: LACOSAMIDE
     Indication: MIGRAINE
     Dosage: 100 MILLIGRAM, 2X/DAY (BID)
     Dates: start: 2013

REACTIONS (2)
  - Product use in unapproved indication [Unknown]
  - Neuropathy peripheral [Not Recovered/Not Resolved]

NARRATIVE: CASE EVENT DATE: 2013
